FAERS Safety Report 26016691 (Version 1)
Quarter: 2025Q4

REPORT INFORMATION
  Report Type: Spontaneous
  Country: US (occurrence: US)
  Receive Date: 20251110
  Receipt Date: 20251110
  Transmission Date: 20260118
  Serious: No
  Sender: LUPIN
  Company Number: US-LUPIN PHARMACEUTICALS INC.-2025-10031

PATIENT
  Age: 55 Year
  Weight: 99.79 kg

DRUGS (2)
  1. ALBUTEROL SULFATE [Suspect]
     Active Substance: ALBUTEROL SULFATE
     Indication: Lung disorder
     Dosage: PRN 2 PUFFS EVERY 6 HOURS
  2. ALBUTEROL SULFATE [Suspect]
     Active Substance: ALBUTEROL SULFATE
     Dosage: PRN 2 PUFFS EVERY 6 HOURS

REACTIONS (5)
  - Wheezing [Unknown]
  - Drug dose omission by device [Unknown]
  - Device malfunction [Unknown]
  - Wrong technique in product usage process [Unknown]
  - Off label use [Unknown]
